FAERS Safety Report 9190876 (Version 1)
Quarter: 2013Q1

REPORT INFORMATION
  Report Type: Spontaneous
  Country: CN (occurrence: CN)
  Receive Date: 20130326
  Receipt Date: 20130326
  Transmission Date: 20140127
  Serious: Yes (Hospitalization, Other)
  Sender: FDA-Public Use
  Company Number: CN-WATSON-2013-04267

PATIENT
  Age: 14 Year
  Sex: Male

DRUGS (6)
  1. LEVETIRACETAM (UNKNOWN) [Suspect]
     Indication: LENNOX-GASTAUT SYNDROME
     Dosage: 500 MG, DAILY
     Route: 065
  2. LEVETIRACETAM (UNKNOWN) [Suspect]
     Dosage: 250 MG, DAILY
     Route: 065
  3. PHENOBARBITAL                      /00023202/ [Concomitant]
     Indication: LENNOX-GASTAUT SYNDROME
     Dosage: 30 MG, DAILY
     Route: 065
  4. PHENOBARBITAL                      /00023202/ [Concomitant]
     Dosage: 15 UNK, UNK
     Route: 065
  5. TOPIRAMATE [Concomitant]
     Indication: LENNOX-GASTAUT SYNDROME
     Dosage: 200 MG, DAILY
     Route: 065
  6. TOPIRAMATE [Concomitant]
     Dosage: 25 UNK, UNK

REACTIONS (3)
  - Status epilepticus [Recovering/Resolving]
  - Partial seizures [Recovering/Resolving]
  - Petit mal epilepsy [Recovering/Resolving]
